FAERS Safety Report 18507800 (Version 1)
Quarter: 2020Q4

REPORT INFORMATION
  Report Type: Spontaneous
  Country: US (occurrence: US)
  Receive Date: 20201116
  Receipt Date: 20201116
  Transmission Date: 20210114
  Serious: Yes (Disabling, Other)
  Sender: FDA-Public Use
  Company Number: US-PURDUE-USA-2020-0173758

PATIENT
  Sex: Female

DRUGS (11)
  1. OXYFAST [Suspect]
     Active Substance: OXYCODONE
     Indication: PRODUCT USED FOR UNKNOWN INDICATION
     Dosage: UNKNOWN DOSE
     Route: 048
  2. OXYCODONE HCL CR TABLETS (SIMILAR TO NDA 22-272) [Suspect]
     Active Substance: OXYCODONE HYDROCHLORIDE
     Indication: PRODUCT USED FOR UNKNOWN INDICATION
     Dosage: 30 MG, TWICE
     Route: 048
  3. MS CONTIN [Suspect]
     Active Substance: MORPHINE SULFATE
     Indication: PRODUCT USED FOR UNKNOWN INDICATION
     Dosage: 60 MG, TID
     Route: 048
  4. NORCO [Suspect]
     Active Substance: ACETAMINOPHEN\HYDROCODONE BITARTRATE
     Indication: PAIN
     Dosage: 10/325 MG, Q12H
     Route: 065
  5. TRAMADOL. [Suspect]
     Active Substance: TRAMADOL
     Indication: PRODUCT USED FOR UNKNOWN INDICATION
     Dosage: 50 MG, UNK FREQUENCY
     Route: 048
  6. HYDROCODONE BITARTRATE AND ACETAMINOPHEN [Suspect]
     Active Substance: ACETAMINOPHEN\HYDROCODONE BITARTRATE
     Dosage: 10/325 MG, Q12H
     Route: 048
  7. OXYCONTIN [Suspect]
     Active Substance: OXYCODONE HYDROCHLORIDE
     Indication: PRODUCT USED FOR UNKNOWN INDICATION
     Dosage: UNKNOWN DOSE
     Route: 048
  8. HYDROCODONE BITARTRATE AND ACETAMINOPHEN [Suspect]
     Active Substance: ACETAMINOPHEN\HYDROCODONE BITARTRATE
     Indication: PAIN
     Dosage: 5/325 MG, Q4H
     Route: 048
  9. NORCO [Suspect]
     Active Substance: ACETAMINOPHEN\HYDROCODONE BITARTRATE
     Dosage: 10/500 MG, UNK FREQUENCY
  10. NORCO [Suspect]
     Active Substance: ACETAMINOPHEN\HYDROCODONE BITARTRATE
     Dosage: 5/325 MG, QID
     Route: 048
  11. FENTANYL. [Suspect]
     Active Substance: FENTANYL
     Indication: INTERVERTEBRAL DISC PROTRUSION
     Dosage: 100 MG, DAILY
     Route: 062

REACTIONS (21)
  - Alcoholism [Unknown]
  - Intervertebral disc protrusion [Unknown]
  - Migraine [Unknown]
  - Drug dependence [Unknown]
  - Asthma [Unknown]
  - Road traffic accident [Unknown]
  - Irritable bowel syndrome [Unknown]
  - Drug withdrawal syndrome [Unknown]
  - Panic disorder [Unknown]
  - Depression [Unknown]
  - Disability [Not Recovered/Not Resolved]
  - Rotator cuff syndrome [Unknown]
  - Impaired driving ability [Unknown]
  - Anxiety [Unknown]
  - Overdose [Unknown]
  - Emotional distress [Unknown]
  - Tension headache [Unknown]
  - Mood swings [Unknown]
  - Pain [Unknown]
  - Insomnia [Unknown]
  - Drug interaction [Unknown]

NARRATIVE: CASE EVENT DATE: 200807
